FAERS Safety Report 16465159 (Version 4)
Quarter: 2022Q2

REPORT INFORMATION
  Report Type: Spontaneous
  Country: US (occurrence: None)
  Receive Date: 20190621
  Receipt Date: 20220428
  Transmission Date: 20220721
  Serious: Yes (Other)
  Sender: FDA-Public Use
  Company Number: 2019SE89179

PATIENT
  Age: 49 Year
  Sex: Female
  Weight: 128.8 kg

DRUGS (55)
  1. NEXIUM [Suspect]
     Active Substance: ESOMEPRAZOLE MAGNESIUM
     Indication: Gastrooesophageal reflux disease
     Route: 048
     Dates: start: 200201
  2. NEXIUM [Suspect]
     Active Substance: ESOMEPRAZOLE MAGNESIUM
     Indication: Gastrooesophageal reflux disease
     Route: 048
     Dates: start: 20130422
  3. NEXIUM [Suspect]
     Active Substance: ESOMEPRAZOLE MAGNESIUM
     Indication: Gastrooesophageal reflux disease
     Route: 048
     Dates: start: 20180515
  4. NEXIUM [Suspect]
     Active Substance: ESOMEPRAZOLE MAGNESIUM
     Indication: Gastrooesophageal reflux disease
     Route: 048
  5. NEXIUM [Suspect]
     Active Substance: ESOMEPRAZOLE MAGNESIUM
     Indication: Gastrooesophageal reflux disease
     Dosage: GENERIC
     Route: 065
     Dates: start: 2013, end: 2015
  6. NEXIUM [Suspect]
     Active Substance: ESOMEPRAZOLE MAGNESIUM
     Indication: Gastrooesophageal reflux disease
     Dosage: GENERIC
     Route: 065
     Dates: start: 2015, end: 2018
  7. PRILOSEC [Suspect]
     Active Substance: OMEPRAZOLE MAGNESIUM
     Indication: Gastrooesophageal reflux disease
     Route: 048
     Dates: start: 200504, end: 200704
  8. PRILOSEC [Suspect]
     Active Substance: OMEPRAZOLE MAGNESIUM
     Indication: Gastrooesophageal reflux disease
     Dosage: GENERIC
     Route: 065
  9. PRILOSEC [Suspect]
     Active Substance: OMEPRAZOLE MAGNESIUM
     Indication: Gastrooesophageal reflux disease
     Dosage: GENERIC
     Route: 065
     Dates: start: 2013, end: 2015
  10. PREVACID [Suspect]
     Active Substance: LANSOPRAZOLE
     Indication: Gastrooesophageal reflux disease
     Route: 065
  11. PREVACID [Suspect]
     Active Substance: LANSOPRAZOLE
     Indication: Gastrooesophageal reflux disease
     Route: 065
     Dates: start: 200503, end: 20070402
  12. MECLIZINE [Concomitant]
     Active Substance: MECLIZINE HYDROCHLORIDE
     Indication: Dizziness
     Dates: start: 201501, end: 201908
  13. ARMOUR THYROID [Concomitant]
     Active Substance: THYROID, PORCINE
     Indication: Thyroid atrophy
     Dates: start: 201902
  14. ROSUVASTATIN [Concomitant]
     Active Substance: ROSUVASTATIN
     Indication: Blood calcium
     Dates: start: 200202, end: 201908
  15. TOPIRAMATE [Concomitant]
     Active Substance: TOPIRAMATE
     Indication: Seizure
     Dates: start: 201402, end: 201908
  16. ACETAMINOPHEN\BUTALBITAL [Concomitant]
     Active Substance: ACETAMINOPHEN\BUTALBITAL
     Indication: Headache
     Dates: start: 200202, end: 201908
  17. TIMOLOL [Concomitant]
     Active Substance: TIMOLOL
     Indication: Eye allergy
     Dates: start: 201403, end: 201908
  18. ACETAMINOPHEN\OXYCODONE HYDROCHLORIDE [Concomitant]
     Active Substance: ACETAMINOPHEN\OXYCODONE HYDROCHLORIDE
     Indication: Pain
     Dates: start: 200202, end: 201908
  19. ALLEGRA [Concomitant]
     Active Substance: FEXOFENADINE HYDROCHLORIDE
     Indication: Hypersensitivity
     Dates: start: 200202, end: 201908
  20. VITAMIN D2 [Concomitant]
     Active Substance: ERGOCALCIFEROL
     Dates: start: 200202, end: 201908
  21. PEPCID [Concomitant]
     Active Substance: FAMOTIDINE
     Dates: start: 200402, end: 201202
  22. TAGAMET [Concomitant]
     Active Substance: CIMETIDINE
     Dates: start: 200202, end: 201604
  23. AVINZA [Concomitant]
     Active Substance: MORPHINE SULFATE
  24. SULFAMETHOXAZOLE [Concomitant]
     Active Substance: SULFAMETHOXAZOLE
  25. KETOCONAZOLE [Concomitant]
     Active Substance: KETOCONAZOLE
  26. CRESTOR [Concomitant]
     Active Substance: ROSUVASTATIN CALCIUM
  27. FEXOFENADINE HCL [Concomitant]
     Active Substance: FEXOFENADINE HYDROCHLORIDE
  28. ABILIFY [Concomitant]
     Active Substance: ARIPIPRAZOLE
  29. LACTULOSE [Concomitant]
     Active Substance: LACTULOSE
  30. PROCRIT [Concomitant]
     Active Substance: ERYTHROPOIETIN
  31. NYSTATIN [Concomitant]
     Active Substance: NYSTATIN
  32. ZONISAMIDE [Concomitant]
     Active Substance: ZONISAMIDE
  33. AMOXICILLIN\CLAVULANATE POTASSIUM [Concomitant]
     Active Substance: AMOXICILLIN\CLAVULANATE POTASSIUM
  34. METRONIDAZOLE [Concomitant]
     Active Substance: METRONIDAZOLE
  35. LIDOCAINE HYDROCHLORIDE [Concomitant]
     Active Substance: LIDOCAINE HYDROCHLORIDE
  36. CYMBALTA [Concomitant]
     Active Substance: DULOXETINE HYDROCHLORIDE
  37. DICYCLOMINE [Concomitant]
     Active Substance: DICYCLOMINE HYDROCHLORIDE
  38. AMOXICILLIN [Concomitant]
     Active Substance: AMOXICILLIN
  39. QNASL [Concomitant]
     Active Substance: BECLOMETHASONE DIPROPIONATE
  40. ZETIA [Concomitant]
     Active Substance: EZETIMIBE
  41. RANITIDINE [Concomitant]
     Active Substance: RANITIDINE
  42. NITROFURANTOIN [Concomitant]
     Active Substance: NITROFURANTOIN
  43. LEVOFLOXACIN [Concomitant]
     Active Substance: LEVOFLOXACIN
  44. COMBIGAN [Concomitant]
     Active Substance: BRIMONIDINE TARTRATE\TIMOLOL MALEATE
  45. MORPHINE SULFATE [Concomitant]
     Active Substance: MORPHINE SULFATE
  46. VALSARTAN [Concomitant]
     Active Substance: VALSARTAN
  47. OMNARIS [Concomitant]
     Active Substance: CICLESONIDE
  48. ALPRAZOLAM [Concomitant]
     Active Substance: ALPRAZOLAM
  49. EMBEDA [Concomitant]
     Active Substance: MORPHINE SULFATE\NALTREXONE HYDROCHLORIDE
     Indication: Pain
     Dates: start: 201503
  50. GRALISE [Concomitant]
     Active Substance: GABAPENTIN
  51. COLLAGENASE SANTYL [Concomitant]
     Active Substance: COLLAGENASE CLOSTRIDIUM HISTOLYTICUM
  52. CLOBETASOL [Concomitant]
     Active Substance: CLOBETASOL
  53. VALACYCLOVIR HYDROCHLORIDE [Concomitant]
     Active Substance: VALACYCLOVIR HYDROCHLORIDE
  54. TRANATONA [Concomitant]
     Indication: Eye allergy
     Dates: start: 201403, end: 201908
  55. FLUXID [Concomitant]
     Active Substance: FAMOTIDINE
     Dates: start: 200702, end: 201002

REACTIONS (4)
  - Chronic kidney disease [Not Recovered/Not Resolved]
  - Renal failure [Not Recovered/Not Resolved]
  - Acute kidney injury [Not Recovered/Not Resolved]
  - Rebound acid hypersecretion [Unknown]

NARRATIVE: CASE EVENT DATE: 20100101
